FAERS Safety Report 8472828-2 (Version None)
Quarter: 2012Q2

REPORT INFORMATION
  Report Type: 
  Country: None (occurrence: None)
  Receive Date: 20120627
  Receipt Date: 20120622
  Transmission Date: 20120825
  Serious: No
  Sender: FDA-Public Use
  Company Number: US-PFIZER INC-2012120434

PATIENT

DRUGS (2)
  1. VIAGRA [Suspect]
     Dosage: 50 MG, AS DIRECTED
  2. LIPITOR [Suspect]
     Dosage: 80 MG, 1 TAB AT BEDTIME

REACTIONS (1)
  - BACK PAIN [None]
